FAERS Safety Report 4682761-X (Version None)
Quarter: 2005Q2

REPORT INFORMATION
  Report Type: 
  Country: None (occurrence: None)
  Receive Date: 20050606
  Receipt Date: 20050601
  Transmission Date: 20051028
  Serious: Yes (Other)
  Sender: FDA-Public Use
  Company Number: PHRM2005FR01713

PATIENT
  Age: 82 Year
  Sex: Female

DRUGS (3)
  1. TAREG [Suspect]
     Route: 048
  2. PLAVIX [Concomitant]
     Route: 048
  3. FLUDEX [Concomitant]
     Route: 048

REACTIONS (3)
  - DERMATITIS BULLOUS [None]
  - ECZEMA NUMMULAR [None]
  - SKIN ULCER [None]
